FAERS Safety Report 22534283 (Version 3)
Quarter: 2023Q4

REPORT INFORMATION
  Report Type: Report from Study
  Country: US (occurrence: US)
  Receive Date: 20230608
  Receipt Date: 20231214
  Transmission Date: 20240109
  Serious: Yes (Hospitalization, Other)
  Sender: FDA-Public Use
  Company Number: US-ABBVIE-4753507

PATIENT
  Sex: Male

DRUGS (2)
  1. SKYRIZI [Suspect]
     Active Substance: RISANKIZUMAB-RZAA
     Indication: Psoriasis
     Route: 058
     Dates: start: 20221031
  2. SKYRIZI [Suspect]
     Active Substance: RISANKIZUMAB-RZAA
     Route: 058
     Dates: start: 20230718

REACTIONS (15)
  - Neoplasm of appendix [Unknown]
  - Renal cyst [Unknown]
  - Appendiceal mucocoele [Unknown]
  - Hepatic cyst [Unknown]
  - Abdominal pain upper [Unknown]
  - Pancreatic cyst [Unknown]
  - Pain in extremity [Unknown]
  - Colitis [Unknown]
  - Insomnia [Unknown]
  - Oesophageal haemorrhage [Unknown]
  - Appendix disorder [Unknown]
  - Renal mass [Unknown]
  - Diverticulitis [Unknown]
  - Cataract [Unknown]
  - Pancreatic mass [Unknown]
